FAERS Safety Report 8366533-0 (Version None)
Quarter: 2012Q2

REPORT INFORMATION
  Report Type: 
  Country: None (occurrence: None)
  Receive Date: 20120517
  Receipt Date: 20120508
  Transmission Date: 20120825
  Serious: Yes (Other)
  Sender: FDA-Public Use
  Company Number: JP-VERTEX PHARMACEUTICALS INC.-AE-2012-007026

PATIENT
  Age: 61 Year
  Sex: Female

DRUGS (20)
  1. RIBAVIRIN [Concomitant]
     Route: 048
     Dates: start: 20120328, end: 20120411
  2. XYLOCAINE [Concomitant]
     Route: 058
     Dates: start: 20120312, end: 20120312
  3. ANTEBATE [Concomitant]
     Route: 061
     Dates: start: 20120323, end: 20120323
  4. TELAVIC (TELAPREVIR) [Suspect]
     Indication: HEPATITIS C
     Route: 048
     Dates: start: 20120313, end: 20120410
  5. PEGINTERFERON ALFA-2B [Concomitant]
     Indication: HEPATITIS C
     Route: 051
     Dates: start: 20120313
  6. YUEKIN KEEP [Concomitant]
     Route: 041
     Dates: start: 20120312, end: 20120312
  7. PENTAZOCINE LACTATE [Concomitant]
     Dates: start: 20120312, end: 20120312
  8. TRANSAMINE CAP [Concomitant]
     Route: 041
     Dates: start: 20120312, end: 20120312
  9. ISOTONIC SODIUM CHLORIDE SOLUTION [Concomitant]
     Route: 041
     Dates: start: 20120312, end: 20120312
  10. URSO 250 [Concomitant]
     Route: 048
     Dates: start: 20120328, end: 20120501
  11. LANSOPRAZOLE [Concomitant]
     Route: 048
     Dates: start: 20120404, end: 20120501
  12. ATARAX [Concomitant]
     Dates: start: 20120312, end: 20120312
  13. ADONA INJECTION [Concomitant]
     Route: 041
     Dates: start: 20120312, end: 20120312
  14. PIRETAZOL [Concomitant]
     Route: 041
     Dates: start: 20120312, end: 20120312
  15. TELAVIC (TELAPREVIR) [Suspect]
     Route: 048
     Dates: start: 20120411, end: 20120418
  16. RIBAVIRIN [Concomitant]
     Indication: HEPATITIS C
     Route: 048
     Dates: start: 20120312, end: 20120327
  17. URSO 250 [Concomitant]
     Route: 048
  18. ISOTONIC SODIUM CHLORIDE SOLUTION [Concomitant]
     Dates: start: 20120312, end: 20120312
  19. RIZE [Concomitant]
     Route: 048
     Dates: start: 20120404, end: 20120501
  20. YUEKIN KEEP [Concomitant]
     Route: 041
     Dates: start: 20120313, end: 20120313

REACTIONS (2)
  - HAEMOGLOBIN DECREASED [None]
  - WHITE BLOOD CELL COUNT DECREASED [None]
